FAERS Safety Report 14207986 (Version 1)
Quarter: 2017Q4

REPORT INFORMATION
  Report Type: Spontaneous
  Country: CA (occurrence: CA)
  Receive Date: 20171121
  Receipt Date: 20171121
  Transmission Date: 20180321
  Serious: Yes (Hospitalization, Disabling, Other)
  Sender: FDA-Public Use
  Company Number: PHHY2017CA165878

PATIENT
  Age: 57 Year
  Sex: Male
  Weight: 94 kg

DRUGS (6)
  1. ROSUVASTATIN. [Concomitant]
     Active Substance: ROSUVASTATIN
     Indication: PRODUCT USED FOR UNKNOWN INDICATION
     Dosage: 5 MG, QHS
     Route: 065
  2. ASA [Concomitant]
     Active Substance: ASPIRIN
     Dosage: 150 MG, UNK
     Route: 065
  3. QUETIAPINE. [Concomitant]
     Active Substance: QUETIAPINE
     Dosage: UNK
  4. EXJADE [Suspect]
     Active Substance: DEFERASIROX
     Indication: CHRONIC MYELOMONOCYTIC LEUKAEMIA
     Dosage: 1500 MG, QD
     Route: 065
     Dates: start: 20170813
  5. ASA [Concomitant]
     Active Substance: ASPIRIN
     Indication: PRODUCT USED FOR UNKNOWN INDICATION
     Dosage: 80 MG, QD
     Route: 065
  6. QUETIAPINE. [Concomitant]
     Active Substance: QUETIAPINE
     Indication: PRODUCT USED FOR UNKNOWN INDICATION
     Dosage: 12.5 MG, QHS
     Route: 065

REACTIONS (10)
  - Ischaemic stroke [Unknown]
  - Aphasia [Not Recovered/Not Resolved]
  - Vertigo [Unknown]
  - Diarrhoea [Unknown]
  - Protein S decreased [Unknown]
  - Hemiplegia [Not Recovered/Not Resolved]
  - Confusional state [Unknown]
  - Protein C decreased [Unknown]
  - Hyalosis asteroid [Unknown]
  - Thrombocytopenia [Unknown]

NARRATIVE: CASE EVENT DATE: 20170926
